FAERS Safety Report 6486861-3 (Version None)
Quarter: 2009Q4

REPORT INFORMATION
  Report Type: 
  Country: None (occurrence: None)
  Receive Date: 20091210
  Receipt Date: 20091125
  Transmission Date: 20100525
  Serious: Yes (Hospitalization)
  Sender: FDA-Public Use
  Company Number: CA-MEDIMMUNE-MEDI-0009767

PATIENT
  Sex: Female
  Weight: 9.5 kg

DRUGS (7)
  1. SYNAGIS [Suspect]
     Route: 030
     Dates: start: 20091117, end: 20091117
  2. ENOXAPARIN SODIUM [Concomitant]
     Route: 058
  3. FUROSEMIDE [Concomitant]
  4. DIGOXIN [Concomitant]
  5. SPIRONOLACTONE [Concomitant]
  6. CLOPIDOGREL [Concomitant]
  7. LANSOPRAZOLE [Concomitant]

REACTIONS (1)
  - INFLUENZA LIKE ILLNESS [None]
